FAERS Safety Report 5517326-0 (Version None)
Quarter: 2007Q4

REPORT INFORMATION
  Report Type: 
  Country: None (occurrence: None)
  Receive Date: 20071114
  Receipt Date: 20071022
  Transmission Date: 20080405
  Serious: No
  Sender: FDA-Public Use
  Company Number: A0688827A

PATIENT
  Age: 44 Year
  Sex: Female

DRUGS (1)
  1. COMMIT [Suspect]
     Dates: start: 20071018, end: 20071018

REACTIONS (3)
  - FEELING ABNORMAL [None]
  - SENSATION OF FOREIGN BODY [None]
  - THROAT TIGHTNESS [None]
